FAERS Safety Report 20184489 (Version 1)
Quarter: 2021Q4

REPORT INFORMATION
  Report Type: Spontaneous
  Country: US (occurrence: US)
  Receive Date: 20211214
  Receipt Date: 20211214
  Transmission Date: 20220303
  Serious: No
  Sender: FDA-Public Use
  Company Number: US-NOVOPROD-860561

PATIENT
  Sex: Male

DRUGS (1)
  1. NOVOLIN 70/30 [Suspect]
     Active Substance: INSULIN HUMAN
     Indication: Product used for unknown indication
     Dosage: 20 IU, BID (20 UNITS TWICE DAILY 12 HOURS APART)
     Route: 058
     Dates: start: 20211015

REACTIONS (3)
  - Dizziness [Unknown]
  - Blood glucose increased [Unknown]
  - Drug ineffective [Unknown]
